FAERS Safety Report 7300800-4 (Version None)
Quarter: 2010Q4

REPORT INFORMATION
  Report Type: 
  Country: None (occurrence: None)
  Receive Date: 20101229
  Receipt Date: 20100125
  Transmission Date: 20110411
  Serious: Yes (Other)
  Sender: FDA-Public Use
  Company Number: RENA-1000628

PATIENT
  Age: 62 Year
  Sex: Female

DRUGS (4)
  1. RENVELA [Suspect]
     Indication: HYPERPHOSPHATAEMIA
     Dosage: ORAL, ORAL, 1.6 G, TID, ORAL
     Route: 048
     Dates: start: 20080401, end: 20080601
  2. RENVELA [Suspect]
     Indication: HYPERPHOSPHATAEMIA
     Dosage: ORAL, ORAL, 1.6 G, TID, ORAL
     Route: 048
     Dates: start: 20080801, end: 20080901
  3. RENVELA [Suspect]
     Indication: HYPERPHOSPHATAEMIA
     Dosage: ORAL, ORAL, 1.6 G, TID, ORAL
     Route: 048
     Dates: start: 20081201, end: 20090401
  4. OS-CAL (CALCIUM) [Concomitant]

REACTIONS (3)
  - NAUSEA [None]
  - PERITONITIS BACTERIAL [None]
  - VOMITING [None]
